FAERS Safety Report 6997940-6 (Version None)
Quarter: 2010Q3

REPORT INFORMATION
  Report Type: 
  Country: None (occurrence: None)
  Receive Date: 20100920
  Receipt Date: 20100914
  Transmission Date: 20110219
  Serious: Yes (Other)
  Sender: FDA-Public Use
  Company Number: FR-WYE-G06553110

PATIENT
  Sex: Female
  Weight: 57 kg

DRUGS (5)
  1. TORISEL [Suspect]
     Indication: MANTLE CELL LYMPHOMA
     Route: 042
     Dates: start: 20100427, end: 20100518
  2. TORISEL [Suspect]
     Route: 042
     Dates: start: 20100519, end: 20100627
  3. CHLORPHENIRAMINE MALEATE [Concomitant]
     Dates: start: 20100427
  4. BACTRIM [Suspect]
     Dosage: UNKNOWN
     Dates: end: 20100101
  5. BACTRIM [Suspect]
     Dosage: UNKNOWN
     Dates: start: 20100101

REACTIONS (5)
  - CHEILITIS [None]
  - CONJUNCTIVITIS [None]
  - ECZEMA [None]
  - LYMPHOPENIA [None]
  - SKIN BURNING SENSATION [None]
